FAERS Safety Report 24114158 (Version 1)
Quarter: 2024Q3

REPORT INFORMATION
  Report Type: Spontaneous
  Country: IT (occurrence: IT)
  Receive Date: 20240720
  Receipt Date: 20240720
  Transmission Date: 20241017
  Serious: Yes (Hospitalization, Other)
  Sender: AUROBINDO
  Company Number: IT-HIKMA PHARMACEUTICALS-IT-H14001-24-06001

PATIENT
  Age: 27 Year
  Sex: Male

DRUGS (8)
  1. MEROPENEM [Suspect]
     Active Substance: MEROPENEM
     Indication: CNS ventriculitis
     Dosage: 2 GRAM, 3 TIMES A DAY ( 3-H INFUSION)
     Route: 065
  2. MEROPENEM [Suspect]
     Active Substance: MEROPENEM
     Indication: Klebsiella bacteraemia
  3. AVIBACTAM SODIUM\CEFTAZIDIME [Concomitant]
     Active Substance: AVIBACTAM SODIUM\CEFTAZIDIME
     Indication: Klebsiella bacteraemia
     Dosage: 2.5 GRAM, 3 TIMES A DAY
     Route: 065
  4. AVIBACTAM SODIUM\CEFTAZIDIME [Concomitant]
     Active Substance: AVIBACTAM SODIUM\CEFTAZIDIME
     Indication: CNS ventriculitis
  5. VABORBACTAM [Concomitant]
     Active Substance: VABORBACTAM
     Indication: CNS ventriculitis
     Dosage: 2 GRAM, 3 TIMES A DAY (3-H INFUSION  )
     Route: 065
  6. VABORBACTAM [Concomitant]
     Active Substance: VABORBACTAM
     Indication: Klebsiella bacteraemia
  7. FOSFOMYCIN [Concomitant]
     Active Substance: FOSFOMYCIN
     Indication: CNS ventriculitis
     Dosage: 8 GRAM, 3 TIMES A DAY (6-H INFUSION)
     Route: 065
  8. FOSFOMYCIN [Concomitant]
     Active Substance: FOSFOMYCIN
     Indication: Klebsiella bacteraemia

REACTIONS (1)
  - Pathogen resistance [Unknown]
